FAERS Safety Report 13554787 (Version 3)
Quarter: 2018Q4

REPORT INFORMATION
  Report Type: Spontaneous
  Country: SI (occurrence: SI)
  Receive Date: 20170517
  Receipt Date: 20181116
  Transmission Date: 20190204
  Serious: Yes (Hospitalization, Other)
  Sender: FDA-Public Use
  Company Number: SI-BAYER-2017-086982

PATIENT
  Age: 30 Year
  Sex: Female

DRUGS (4)
  1. BETAFERON [Suspect]
     Active Substance: INTERFERON BETA-1B
     Indication: RELAPSING-REMITTING MULTIPLE SCLEROSIS
     Dosage: UNK
     Route: 058
     Dates: start: 200003, end: 201003
  2. BETAFERON [Suspect]
     Active Substance: INTERFERON BETA-1B
     Indication: RELAPSING-REMITTING MULTIPLE SCLEROSIS
     Dosage: UNK
     Route: 058
     Dates: start: 201006
  3. CONCOR [Concomitant]
     Active Substance: BISOPROLOL FUMARATE
     Indication: PALPITATIONS
     Dosage: UNK
     Dates: start: 201004
  4. BETAFERON [Suspect]
     Active Substance: INTERFERON BETA-1B
     Indication: RELAPSING-REMITTING MULTIPLE SCLEROSIS
     Dosage: UNK
     Route: 058
     Dates: start: 19970901

REACTIONS (77)
  - Dysphagia [None]
  - Clumsiness [None]
  - Gait disturbance [Recovered/Resolved]
  - Secondary progressive multiple sclerosis [None]
  - Fatigue [None]
  - Anaemia [None]
  - Speech disorder [None]
  - Lhermitte^s sign [None]
  - Fatigue [Recovered/Resolved]
  - Temperature intolerance [None]
  - Dysphagia [None]
  - Anaemia [None]
  - Influenza like illness [None]
  - Gait disturbance [None]
  - Hemiparaesthesia [None]
  - Multiple sclerosis [None]
  - Multiple sclerosis relapse [None]
  - Optic neuritis [None]
  - Quadriparesis [None]
  - Multiple sclerosis [None]
  - Hypothyroidism [None]
  - Gait disturbance [None]
  - Paresis [None]
  - Hemianaesthesia [None]
  - Hemiparesis [Recovered/Resolved]
  - Infection [None]
  - Arrhythmia [None]
  - Gait disturbance [None]
  - Multiple sclerosis [Recovered/Resolved]
  - Balance disorder [Recovering/Resolving]
  - Paraesthesia [Recovered/Resolved]
  - Injection site haematoma [None]
  - Infection [None]
  - Hypotonia [None]
  - Coordination abnormal [Recovering/Resolving]
  - Quadriparesis [None]
  - Cerebral disorder [None]
  - Hemiparaesthesia [None]
  - Burning sensation [None]
  - Musculoskeletal stiffness [None]
  - Gait disturbance [Recovering/Resolving]
  - Chills [Recovered/Resolved]
  - Insomnia [None]
  - Erythema [None]
  - Burning sensation [None]
  - Visual evoked potentials abnormal [None]
  - Panic attack [None]
  - Dyspnoea [None]
  - Microcytosis [None]
  - Neuralgia [None]
  - Multiple sclerosis [None]
  - Multiple sclerosis [None]
  - Vision blurred [Recovered/Resolved]
  - Escherichia urinary tract infection [Recovered/Resolved]
  - Gait disturbance [Recovered/Resolved]
  - Oropharyngeal discomfort [None]
  - Haemoglobin decreased [None]
  - Speech disorder [Recovered/Resolved]
  - Cerebral disorder [None]
  - Quadriparesis [Recovering/Resolving]
  - Postprandial hypoglycaemia [None]
  - Gait disturbance [None]
  - Paraesthesia oral [None]
  - Ventricular extrasystoles [None]
  - Hemianaesthesia [None]
  - Dyspnoea [None]
  - Neurogenic bladder [None]
  - Multiple sclerosis [Recovering/Resolving]
  - Autoimmune thyroiditis [None]
  - Infection [None]
  - Visual impairment [None]
  - Muscle disorder [None]
  - Gait disturbance [None]
  - Monoparesis [None]
  - Pain in extremity [Recovered/Resolved]
  - Palpitations [None]
  - Throat irritation [None]

NARRATIVE: CASE EVENT DATE: 1997
